FAERS Safety Report 8365183-X (Version None)
Quarter: 2012Q2

REPORT INFORMATION
  Report Type: 
  Country: None (occurrence: None)
  Receive Date: 20120516
  Receipt Date: 20120504
  Transmission Date: 20120825
  Serious: No
  Sender: FDA-Public Use
  Company Number: US-ASTRAZENECA-2012SE29171

PATIENT
  Age: 74 Year
  Sex: Female
  Weight: 61.7 kg

DRUGS (5)
  1. RANOLAZINE [Concomitant]
  2. BRILINTA [Suspect]
     Indication: ACUTE CORONARY SYNDROME
     Route: 048
     Dates: start: 20120121
  3. OMEPRAZOLE [Concomitant]
     Route: 048
  4. HUMULIN R [Concomitant]
     Indication: DIABETES MELLITUS
  5. KOREG [Concomitant]

REACTIONS (2)
  - PAIN [None]
  - HAEMATOMA [None]
